FAERS Safety Report 4747810-9 (Version None)
Quarter: 2005Q3

REPORT INFORMATION
  Report Type: 
  Country: None (occurrence: None)
  Receive Date: 20050816
  Receipt Date: 20050804
  Transmission Date: 20060218
  Serious: Yes (Other)
  Sender: FDA-Public Use
  Company Number: 200508IM000377

PATIENT
  Age: 50 Year
  Sex: Male
  Weight: 113.3993 kg

DRUGS (5)
  1. INFERGEN [Suspect]
     Indication: HEPATITIS C
     Dosage: 15 UG, QD, SUBCUTANEOUS
     Route: 058
     Dates: start: 20040620, end: 20050527
  2. TOPROL-XL [Concomitant]
  3. RIBAVIRIN [Concomitant]
  4. LEXAPRO [Concomitant]
  5. XANAX [Concomitant]

REACTIONS (6)
  - CARDIAC MURMUR [None]
  - DISTURBANCE IN ATTENTION [None]
  - NEUROLOGICAL SYMPTOM [None]
  - PARKINSONISM [None]
  - SPEECH DISORDER [None]
  - VASCULITIS [None]
